FAERS Safety Report 5301122-3 (Version None)
Quarter: 2007Q2

REPORT INFORMATION
  Report Type: 
  Country: None (occurrence: None)
  Receive Date: 20070418
  Receipt Date: 20070406
  Transmission Date: 20071010
  Serious: Yes (Hospitalization, Other)
  Sender: FDA-Public Use
  Company Number: US-AMGEN-STX200250

PATIENT
  Sex: Female

DRUGS (3)
  1. ENBREL [Suspect]
     Indication: RHEUMATOID ARTHRITIS
     Route: 058
     Dates: start: 20050401
  2. PLAQUENIL [Concomitant]
     Dates: start: 20050301
  3. PREDNISONE TAB [Concomitant]

REACTIONS (5)
  - ANAL FISTULA [None]
  - BENIGN NEOPLASM [None]
  - RECTAL ABSCESS [None]
  - RECTAL FISSURE [None]
  - VULVAL DISORDER [None]
